FAERS Safety Report 17472859 (Version 1)
Quarter: 2020Q1

REPORT INFORMATION
  Report Type: Spontaneous
  Country: US (occurrence: US)
  Receive Date: 20200228
  Receipt Date: 20200228
  Transmission Date: 20200409
  Serious: Yes (Hospitalization, Other)
  Sender: FDA-Public Use
  Company Number: US-BRISTOL-MYERS SQUIBB COMPANY-BMS-2020-015607

PATIENT
  Sex: Male
  Weight: 77.1 kg

DRUGS (1)
  1. NIVOLUMAB [Suspect]
     Active Substance: NIVOLUMAB
     Indication: RENAL CANCER
     Dosage: UNK, Q2WK
     Route: 042

REACTIONS (8)
  - Spinal cord neoplasm [Unknown]
  - Muscle spasms [Unknown]
  - Spinal disorder [Unknown]
  - Intervertebral disc disorder [Unknown]
  - Back pain [Unknown]
  - Product dose omission [Unknown]
  - Decreased appetite [Unknown]
  - Abdominal pain upper [Unknown]
